FAERS Safety Report 4267692-1 (Version None)
Quarter: 2004Q1

REPORT INFORMATION
  Report Type: 
  Country: None (occurrence: None)
  Receive Date: 20040109
  Receipt Date: 20031008
  Transmission Date: 20041129
  Serious: Yes (Other)
  Sender: FDA-Public Use
  Company Number: PHBS2003BE10999

PATIENT
  Sex: Female

DRUGS (1)
  1. LAMISIL [Suspect]
     Route: 048

REACTIONS (3)
  - HEPATITIS [None]
  - IDIOPATHIC THROMBOCYTOPENIC PURPURA [None]
  - PETECHIAE [None]
